FAERS Safety Report 21636504 (Version 2)
Quarter: 2023Q1

REPORT INFORMATION
  Report Type: Report from Study
  Country: RO (occurrence: RO)
  Receive Date: 20221124
  Receipt Date: 20230118
  Transmission Date: 20230417
  Serious: Yes (Other)
  Sender: FDA-Public Use
  Company Number: RO-CELLTRION INC.-2022RO019576

PATIENT

DRUGS (8)
  1. TRASTUZUMAB [Suspect]
     Active Substance: TRASTUZUMAB
     Indication: Breast cancer metastatic
     Dosage: 450 MG, EVERY 3 WEEKS
     Route: 042
     Dates: start: 20191112, end: 20201116
  2. DOCETAXEL [Suspect]
     Active Substance: DOCETAXEL
     Indication: Breast cancer metastatic
     Dosage: 140 MG, EVERY 3 WEEKS
     Route: 042
     Dates: start: 20191112, end: 20200908
  3. PERTUZUMAB [Suspect]
     Active Substance: PERTUZUMAB
     Indication: Breast cancer metastatic
     Dosage: 420 MG, EVERY 3 WEEKS
     Route: 042
     Dates: start: 20200217, end: 20200313
  4. PERTUZUMAB [Suspect]
     Active Substance: PERTUZUMAB
     Dosage: 420 MG, EVERY 3 WEEKS
     Route: 042
     Dates: start: 20191112, end: 20200107
  5. PERTUZUMAB [Suspect]
     Active Substance: PERTUZUMAB
     Dosage: 420 MG, EVERY 3 WEEKS
     Route: 042
     Dates: start: 20200511, end: 20201116
  6. ATACAND [Concomitant]
     Active Substance: CANDESARTAN CILEXETIL
     Indication: Ejection fraction decreased
     Dosage: 16 MG, QD
     Dates: start: 20200128
  7. INDAPAMIDE [Concomitant]
     Active Substance: INDAPAMIDE
     Indication: Ejection fraction decreased
     Dosage: 1.5 MG, QD
     Dates: start: 20200128
  8. ATORVASTATIN [Concomitant]
     Active Substance: ATORVASTATIN
     Indication: Ejection fraction decreased
     Dosage: 20 MG, QD
     Dates: start: 20200128

REACTIONS (2)
  - Neuropathy peripheral [Unknown]
  - Underdose [Unknown]

NARRATIVE: CASE EVENT DATE: 20200609
